FAERS Safety Report 16953829 (Version 1)
Quarter: 2019Q4

REPORT INFORMATION
  Report Type: Spontaneous
  Country: RU (occurrence: RU)
  Receive Date: 20191023
  Receipt Date: 20191023
  Transmission Date: 20200122
  Serious: Yes (Death, Hospitalization, Other)
  Sender: FDA-Public Use
  Company Number: NVSC2019RU013534

PATIENT

DRUGS (2)
  1. LENVATINIB [Suspect]
     Active Substance: LENVATINIB
     Indication: METASTATIC RENAL CELL CARCINOMA
     Dosage: 18 MG, QD
     Route: 065
  2. EVEROLIMUS. [Suspect]
     Active Substance: EVEROLIMUS
     Indication: METASTATIC RENAL CELL CARCINOMA
     Dosage: 5 MG DAILY OR 10 MG EVERY OTHER DAY
     Route: 065

REACTIONS (5)
  - Pneumonia [Fatal]
  - Metastases to lung [Unknown]
  - Pneumonitis [Fatal]
  - Toxicity to various agents [Fatal]
  - Metastases to pleura [Unknown]
